FAERS Safety Report 21932125 (Version 1)
Quarter: 2023Q1

REPORT INFORMATION
  Report Type: Spontaneous
  Country: US (occurrence: US)
  Receive Date: 20230131
  Receipt Date: 20230131
  Transmission Date: 20230417
  Serious: No
  Sender: FDA-Public Use
  Company Number: US-BRISTOL-MYERS SQUIBB COMPANY-2023-012211

PATIENT
  Age: 75 Year
  Sex: Male

DRUGS (19)
  1. REVLIMID [Suspect]
     Active Substance: LENALIDOMIDE
     Indication: Plasma cell myeloma
     Route: 048
     Dates: start: 20221203
  2. DEXAMETHASONE 4MG TABLETS [Concomitant]
     Indication: Product used for unknown indication
  3. VIT D 10000 IU D3 (CHOLE) TABLETS [Concomitant]
     Indication: Product used for unknown indication
  4. LORAZEPAM [Concomitant]
     Active Substance: LORAZEPAM
     Indication: Product used for unknown indication
  5. ONDANSETRON HYDROCHLORIDE [Concomitant]
     Active Substance: ONDANSETRON HYDROCHLORIDE
     Indication: Product used for unknown indication
  6. OMEPRAZOLE 10 MG CAPSULES [Concomitant]
     Indication: Product used for unknown indication
  7. AMLODIPINE BESYLATE 10 MG TABLETS [Concomitant]
     Indication: Product used for unknown indication
  8. DIAZEPAM 10 MG TABLETS [Concomitant]
     Indication: Product used for unknown indication
  9. DULOXETINE [Concomitant]
     Active Substance: DULOXETINE
     Indication: Product used for unknown indication
  10. HUMALOG 100 U/ML KWIK PEN INJ 3ML [Concomitant]
     Indication: Product used for unknown indication
     Dosage: HUMALOG 100 U/ML KWIK PEN INJ 3ML
  11. HYDROCHLOROTHlAZlDE 125MG CAPSULES [Concomitant]
     Indication: Product used for unknown indication
  12. LANTUS SOLOSTAR PEN INJ 3ML [Concomitant]
     Indication: Product used for unknown indication
  13. LISINOPRIL [Concomitant]
     Active Substance: LISINOPRIL
     Indication: Product used for unknown indication
  14. METFORMIN HYDROCHLORIDE [Concomitant]
     Active Substance: METFORMIN HYDROCHLORIDE
     Indication: Product used for unknown indication
  15. METOPROLOL ER SUCCINATE 100 MG TABS [Concomitant]
     Indication: Product used for unknown indication
  16. NITROGLYCERIN 0.4MG SUB TAB 25S [Concomitant]
     Indication: Product used for unknown indication
  17. POTASSIUM CHLORIDE ER 8MEQ TABLETS [Concomitant]
     Indication: Product used for unknown indication
  18. SIMVASTATIN 10MG TABLETS [Concomitant]
     Indication: Product used for unknown indication
  19. MIRALAX 3350 POWDER PACKETS 12^S [Concomitant]
     Indication: Product used for unknown indication
     Dosage: MIRALAX 3350 POWDER PACKETS 12^S

REACTIONS (1)
  - Diarrhoea [Unknown]

NARRATIVE: CASE EVENT DATE: 20230101
